FAERS Safety Report 4416562-4 (Version None)
Quarter: 2004Q3

REPORT INFORMATION
  Report Type: 
  Country: None (occurrence: None)
  Receive Date: 20040802
  Receipt Date: 20040720
  Transmission Date: 20050211
  Serious: Yes (Hospitalization)
  Sender: FDA-Public Use
  Company Number: GB-JNJFOC-20040705319

PATIENT
  Age: 61 Year
  Sex: Female

DRUGS (10)
  1. REMICADE [Suspect]
     Indication: RHEUMATOID ARTHRITIS
     Dosage: 300 MG, INTRAVENOUS
     Route: 042
     Dates: start: 20020731, end: 20031001
  2. PREDNISONE [Concomitant]
  3. ARTHROTEC [Concomitant]
  4. ASPIRIN [Concomitant]
  5. TRAMADOL HCL [Concomitant]
  6. SEVREDOL (MORPHINE SULFATE) [Concomitant]
  7. RALOXIFEN (RALOXIFEN) [Concomitant]
  8. METHOTREXATE [Concomitant]
  9. FOLIC ACID [Concomitant]
  10. SOTALOL HCL [Concomitant]

REACTIONS (2)
  - SEPSIS [None]
  - VENTRICULAR FAILURE [None]
